FAERS Safety Report 5043909-0 (Version None)
Quarter: 2006Q3

REPORT INFORMATION
  Report Type: 
  Country: None (occurrence: None)
  Receive Date: 20060706
  Receipt Date: 20060627
  Transmission Date: 20061208
  Serious: Yes (Other)
  Sender: FDA-Public Use
  Company Number: PHMT2006CA01422

PATIENT

DRUGS (1)
  1. ZELNORM [Suspect]
     Indication: INTESTINAL OBSTRUCTION
     Dosage: 36 MG QD

REACTIONS (1)
  - TRANSAMINASES INCREASED [None]
